FAERS Safety Report 24141601 (Version 1)
Quarter: 2024Q3

REPORT INFORMATION
  Report Type: Spontaneous
  Country: US (occurrence: None)
  Receive Date: 20240726
  Receipt Date: 20240726
  Transmission Date: 20241016
  Serious: Yes (Hospitalization)
  Sender: Public
  Company Number: None

PATIENT
  Age: 64 Year
  Sex: Female

DRUGS (1)
  1. VYXEOS [Suspect]
     Active Substance: CYTARABINE\DAUNORUBICIN

REACTIONS (5)
  - Gait disturbance [None]
  - Fall [None]
  - Febrile neutropenia [None]
  - Blood culture positive [None]
  - Bacterial infection [None]

NARRATIVE: CASE EVENT DATE: 20240715
